FAERS Safety Report 8861352 (Version 2)
Quarter: 2012Q4

REPORT INFORMATION
  Report Type: 
  Country: US (occurrence: US)
  Receive Date: 20121026
  Receipt Date: 20121204
  Transmission Date: 20130627
  Serious: No
  Sender: FDA-Public Use
  Company Number: US-009507513-1209USA011060

PATIENT
  Sex: Female
  Weight: 51.25 kg

DRUGS (1)
  1. IMPLANON [Suspect]
     Indication: CONTRACEPTION
     Dosage: 1 DF, per 3 years
     Route: 059
     Dates: start: 20110912, end: 20121003

REACTIONS (1)
  - No adverse event [Unknown]
